FAERS Safety Report 7992909-7 (Version None)
Quarter: 2011Q4

REPORT INFORMATION
  Report Type: 
  Country: None (occurrence: None)
  Receive Date: 20111219
  Receipt Date: 20111026
  Transmission Date: 20120403
  Serious: No
  Sender: FDA-Public Use
  Company Number: US-ASTRAZENECA-2011SE64651

PATIENT
  Age: 75 Year
  Sex: Male
  Weight: 117.9 kg

DRUGS (1)
  1. CRESTOR [Suspect]
     Indication: BLOOD CHOLESTEROL ABNORMAL
     Route: 048
     Dates: start: 20110803, end: 20111018

REACTIONS (5)
  - EYE DISORDER [None]
  - MYALGIA [None]
  - VISUAL ACUITY REDUCED [None]
  - PAIN [None]
  - MUSCULAR WEAKNESS [None]
